FAERS Safety Report 20566030 (Version 1)
Quarter: 2022Q1

REPORT INFORMATION
  Report Type: Spontaneous
  Country: US (occurrence: None)
  Receive Date: 20220307
  Receipt Date: 20220307
  Transmission Date: 20220423
  Serious: Yes (Disabling)
  Sender: FDA-Public Use
  Company Number: None

PATIENT
  Age: 78 Year
  Sex: Female
  Weight: 60.75 kg

DRUGS (1)
  1. RECLAST [Suspect]
     Active Substance: ZOLEDRONIC ACID
     Indication: Osteoporosis
     Dosage: OTHER FREQUENCY : 1X YEAR;?
     Route: 042
     Dates: start: 20220202, end: 20220202

REACTIONS (5)
  - Pyrexia [None]
  - Pain [None]
  - Neck pain [None]
  - Tinnitus [None]
  - Subdural haematoma [None]

NARRATIVE: CASE EVENT DATE: 20220202
